FAERS Safety Report 21795466 (Version 1)
Quarter: 2022Q4

REPORT INFORMATION
  Report Type: Spontaneous
  Country: US (occurrence: None)
  Receive Date: 20221228
  Receipt Date: 20221228
  Transmission Date: 20230113
  Serious: Yes (Death)
  Sender: FDA-Public Use
  Company Number: None

PATIENT
  Age: 69 Year
  Sex: Female

DRUGS (13)
  1. XOLAIR [Suspect]
     Active Substance: OMALIZUMAB
     Indication: Chronic obstructive pulmonary disease
     Dosage: OTHER FREQUENCY : EVERY 2 WEEKS;?
     Route: 058
     Dates: start: 20220407
  2. CALCIUM [Concomitant]
     Active Substance: CALCIUM
  3. ESTER-C [Concomitant]
  4. FIORICET CAP [Concomitant]
  5. LEVALBUTEROL NEB [Concomitant]
  6. LEVOCETIRIZI [Concomitant]
  7. MAGNESIUM [Concomitant]
  8. MONTELUKAST [Concomitant]
     Active Substance: MONTELUKAST SODIUM
  9. VITAMINS [Concomitant]
     Active Substance: VITAMINS
  10. PROAIR HFA AER [Concomitant]
  11. UBIQUINOL [Concomitant]
     Active Substance: UBIQUINOL
  12. VITAMIN D3 [Concomitant]
     Active Substance: CHOLECALCIFEROL
  13. VOLTAREN GEL [Concomitant]

REACTIONS (2)
  - COVID-19 [None]
  - Pneumonia [None]

NARRATIVE: CASE EVENT DATE: 20221126
